FAERS Safety Report 25974070 (Version 1)
Quarter: 2025Q4

REPORT INFORMATION
  Report Type: Other
  Country: GB (occurrence: GB)
  Receive Date: 20251029
  Receipt Date: 20251029
  Transmission Date: 20260117
  Serious: Yes (Other)
  Sender: MACLEODS
  Company Number: GB-MHRA-37348645

PATIENT

DRUGS (1)
  1. ROSUVASTATIN [Suspect]
     Active Substance: ROSUVASTATIN
     Indication: Product used for unknown indication
     Route: 065
     Dates: start: 20250723

REACTIONS (3)
  - Pustular psoriasis [Unknown]
  - Genital pain [Unknown]
  - Pruritus [Unknown]

NARRATIVE: CASE EVENT DATE: 20250725
